FAERS Safety Report 8589252-4 (Version None)
Quarter: 2012Q3

REPORT INFORMATION
  Report Type: 
  Country: None (occurrence: None)
  Receive Date: 20120813
  Receipt Date: 20120729
  Transmission Date: 20120928
  Serious: Yes (Other)
  Sender: FDA-Public Use
  Company Number: US-JNJFOC-20120800095

PATIENT
  Age: 46 Year

DRUGS (2)
  1. EXTRA STRENGTH TYLENOL PM [Suspect]
     Indication: INSOMNIA
     Dosage: 500 MG
     Route: 048
  2. EXTRA STRENGTH TYLENOL PM [Suspect]
     Indication: PAIN
     Dosage: 500 MG
     Route: 048

REACTIONS (2)
  - WITHDRAWAL SYNDROME [None]
  - INTENTIONAL DRUG MISUSE [None]
